FAERS Safety Report 9196827 (Version 1)
Quarter: 2013Q1

REPORT INFORMATION
  Report Type: Spontaneous
  Country: US (occurrence: None)
  Receive Date: 20120703
  Receipt Date: 20120703
  Transmission Date: 20140127
  Serious: No
  Sender: FDA-Public Use
  Company Number: PHEH2012US007386

PATIENT
  Age: 69 Year
  Sex: Female

DRUGS (1)
  1. GILENYA (FTY) CAPSULE, 0.5 MG [Suspect]
     Indication: RELAPSING-REMITTING MULTIPLE SCLEROSIS
     Route: 048
     Dates: start: 20120327

REACTIONS (5)
  - Cognitive disorder [None]
  - Sleep attacks [None]
  - Hearing impaired [None]
  - Speech disorder [None]
  - Asthenia [None]
